FAERS Safety Report 7472243-4 (Version None)
Quarter: 2011Q2

REPORT INFORMATION
  Report Type: 
  Country: None (occurrence: None)
  Receive Date: 20110502
  Receipt Date: 20110418
  Transmission Date: 20111010
  Serious: Yes (Hospitalization)
  Sender: FDA-Public Use
  Company Number: 20110012USST

PATIENT
  Age: 90 Year
  Sex: Male

DRUGS (5)
  1. DOXORUBICIN HCL [Suspect]
     Indication: HODGKIN'S DISEASE
  2. MATULANE [Suspect]
     Indication: HODGKIN'S DISEASE
  3. VINBLASTINE SULFATE [Suspect]
     Indication: HODGKIN'S DISEASE
  4. PREDNISOLONE [Suspect]
     Indication: HODGKIN'S DISEASE
  5. CYCLOPHOSPHAMIDE [Suspect]
     Indication: HODGKIN'S DISEASE

REACTIONS (5)
  - BLOOD MAGNESIUM DECREASED [None]
  - MUSCULAR WEAKNESS [None]
  - NEOPLASM PROGRESSION [None]
  - HYPOCALCAEMIA [None]
  - HODGKIN'S DISEASE [None]
